FAERS Safety Report 14335870 (Version 2)
Quarter: 2018Q1

REPORT INFORMATION
  Report Type: Spontaneous
  Country: US (occurrence: US)
  Receive Date: 20171229
  Receipt Date: 20180110
  Transmission Date: 20180509
  Serious: Yes (Hospitalization, Other)
  Sender: FDA-Public Use
  Company Number: US-STRIDES ARCOLAB LIMITED-2017SP015068

PATIENT

DRUGS (2)
  1. TACROLIMUS. [Suspect]
     Active Substance: TACROLIMUS
     Dosage: 1 MG, PER DAY (DOSE REDUCED)
     Route: 065
  2. TACROLIMUS. [Suspect]
     Active Substance: TACROLIMUS
     Indication: RENAL TRANSPLANT
     Dosage: 5 MG, PER DAY
     Route: 065

REACTIONS (8)
  - Inferior vena cava dilatation [Unknown]
  - Renal failure [Unknown]
  - Acute kidney injury [Unknown]
  - Oedema peripheral [Unknown]
  - Right ventricular dysfunction [Recovered/Resolved]
  - Tricuspid valve incompetence [Recovered/Resolved]
  - Oliguria [Unknown]
  - Pulmonary hypertension [Unknown]
